FAERS Safety Report 20711443 (Version 1)
Quarter: 2022Q2

REPORT INFORMATION
  Report Type: Spontaneous
  Country: JP (occurrence: JP)
  Receive Date: 20220414
  Receipt Date: 20220414
  Transmission Date: 20220721
  Serious: Yes (Hospitalization, Other)
  Sender: FDA-Public Use
  Company Number: JP-PFIZER INC-202200529074

PATIENT
  Age: 10 Decade
  Sex: Male
  Weight: 68 kg

DRUGS (11)
  1. LYRICA [Suspect]
     Active Substance: PREGABALIN
     Indication: Lung cancer metastatic
     Dosage: 25 MG, 1X/DAY
     Route: 048
     Dates: start: 202109
  2. HYDROMORPHONE HYDROCHLORIDE [Concomitant]
     Active Substance: HYDROMORPHONE HYDROCHLORIDE
  3. HYDROMORPHONE HYDROCHLORIDE [Concomitant]
     Active Substance: HYDROMORPHONE HYDROCHLORIDE
  4. CALONAL [Concomitant]
     Active Substance: ACETAMINOPHEN
  5. MELOXICAM [Concomitant]
     Active Substance: MELOXICAM
  6. RABEPRAZOLE [Concomitant]
     Active Substance: RABEPRAZOLE
  7. SYMPROIC [Concomitant]
     Active Substance: NALDEMEDINE
  8. MAGNESIUM OXIDE [Concomitant]
     Active Substance: MAGNESIUM OXIDE
  9. LINZESS [Concomitant]
     Active Substance: LINACLOTIDE
  10. ZOLPIDEM [Concomitant]
     Active Substance: ZOLPIDEM TARTRATE
  11. AMLODIPINE [Concomitant]
     Active Substance: AMLODIPINE BESYLATE

REACTIONS (9)
  - Cardiac failure congestive [Recovered/Resolved]
  - Blood pressure increased [Recovered/Resolved]
  - Blood potassium increased [Recovered/Resolved]
  - Hyperkalaemia [Unknown]
  - Pleural effusion [Unknown]
  - Heart rate decreased [Unknown]
  - Dyspnoea [Unknown]
  - Hypertension [Unknown]
  - Off label use [Unknown]

NARRATIVE: CASE EVENT DATE: 20210101
